FAERS Safety Report 7278990-1 (Version None)
Quarter: 2011Q1

REPORT INFORMATION
  Report Type: 
  Country: None (occurrence: None)
  Receive Date: 20110207
  Receipt Date: 20110125
  Transmission Date: 20110831
  Serious: Yes (Death, Hospitalization)
  Sender: FDA-Public Use
  Company Number: US-TYCO HEALTHCARE/MALLINCKRODT-T201100151

PATIENT
  Age: 17 Year
  Sex: Male

DRUGS (6)
  1. VENLAFAXINE [Suspect]
     Dosage: UNK
     Route: 048
  2. LOVASTATIN [Suspect]
     Dosage: UNK
     Route: 048
  3. PROPRANOLOL [Suspect]
     Dosage: UNK
     Route: 048
  4. GABAPENTIN [Suspect]
     Dosage: UNK
     Route: 048
  5. METHADOSE [Suspect]
     Dosage: UNK
     Route: 048
  6. FEXOFENADINE [Suspect]
     Dosage: UNK
     Route: 048

REACTIONS (4)
  - CARDIO-RESPIRATORY ARREST [None]
  - TOXICITY TO VARIOUS AGENTS [None]
  - COMPLETED SUICIDE [None]
  - UNRESPONSIVE TO STIMULI [None]
